FAERS Safety Report 14205666 (Version 1)
Quarter: 2017Q4

REPORT INFORMATION
  Report Type: Spontaneous
  Country: US (occurrence: None)
  Receive Date: 20171120
  Receipt Date: 20171120
  Transmission Date: 20180321
  Serious: Yes (Life-Threatening, Hospitalization)
  Sender: FDA-Public Use
  Company Number: None

PATIENT
  Age: 48 Year
  Sex: Female
  Weight: 72.58 kg

DRUGS (3)
  1. FLUOXETINE [Suspect]
     Active Substance: FLUOXETINE HYDROCHLORIDE
     Indication: ANXIETY
     Route: 048
     Dates: start: 2015, end: 20170315
  2. MAGNESIUM [Concomitant]
     Active Substance: MAGNESIUM
  3. VITAMINS [Concomitant]
     Active Substance: VITAMINS

REACTIONS (4)
  - Extrasystoles [None]
  - Cardiac disorder [None]
  - Cardiac flutter [None]
  - Bradycardia [None]

NARRATIVE: CASE EVENT DATE: 20170310
